FAERS Safety Report 10632096 (Version 1)
Quarter: 2014Q4

REPORT INFORMATION
  Report Type: Spontaneous
  Country: US (occurrence: US)
  Receive Date: 20141205
  Receipt Date: 20141205
  Transmission Date: 20150529
  Serious: No
  Sender: FDA-Public Use
  Company Number: US-BRISTOL-MYERS SQUIBB COMPANY-21098793

PATIENT
  Age: 77 Year
  Sex: Female
  Weight: 83.44 kg

DRUGS (19)
  1. ASPIRIN. [Concomitant]
     Active Substance: ASPIRIN
  2. LORAZEPAM. [Concomitant]
     Active Substance: LORAZEPAM
  3. CELEBREX [Concomitant]
     Active Substance: CELECOXIB
  4. GLUCOPHAGE [Concomitant]
     Active Substance: METFORMIN HYDROCHLORIDE
  5. SPIRIVA [Concomitant]
     Active Substance: TIOTROPIUM BROMIDE MONOHYDRATE
  6. IPRATROPIUM [Concomitant]
     Active Substance: IPRATROPIUM
  7. ZOCOR [Concomitant]
     Active Substance: SIMVASTATIN
  8. PREMARIN [Concomitant]
     Active Substance: ESTROGENS, CONJUGATED
     Route: 067
  9. ZETIA [Concomitant]
     Active Substance: EZETIMIBE
  10. BYETTA [Suspect]
     Active Substance: EXENATIDE
     Indication: TYPE 2 DIABETES MELLITUS
     Route: 058
     Dates: start: 201405
  11. ALBUTEROL. [Concomitant]
     Active Substance: ALBUTEROL
  12. DICLOFENAC [Concomitant]
     Active Substance: DICLOFENAC
  13. NYSTATIN. [Concomitant]
     Active Substance: NYSTATIN
  14. CLOTRIMAZOLE. [Concomitant]
     Active Substance: CLOTRIMAZOLE
     Indication: RASH
  15. VITAMIN D3 [Concomitant]
     Active Substance: CHOLECALCIFEROL
  16. LORATADINE. [Concomitant]
     Active Substance: LORATADINE
  17. POTASSIUM [Concomitant]
     Active Substance: POTASSIUM
  18. JANUVIA [Concomitant]
     Active Substance: SITAGLIPTIN PHOSPHATE
  19. LISINOPRIL. [Concomitant]
     Active Substance: LISINOPRIL

REACTIONS (1)
  - Drug dose omission [Unknown]

NARRATIVE: CASE EVENT DATE: 201405
